FAERS Safety Report 8443046-9 (Version None)
Quarter: 2012Q2

REPORT INFORMATION
  Report Type: 
  Country: None (occurrence: None)
  Receive Date: 20120615
  Receipt Date: 20120612
  Transmission Date: 20120825
  Serious: Yes (Other)
  Sender: FDA-Public Use
  Company Number: PHHY2012GB050752

PATIENT
  Age: 80 Year
  Sex: Male

DRUGS (5)
  1. BETAMETHASONE VALERATE [Suspect]
     Indication: PRURITUS
     Dosage: 1 DF, BID
     Dates: start: 20070101
  2. BETAMETHASONE [Suspect]
     Dosage: 1 DF, BID
     Dates: start: 20091201, end: 20100310
  3. PROCHLORPERAZINE [Suspect]
     Indication: VERTIGO
     Dates: start: 20070101
  4. PHENERGAN [Suspect]
     Dosage: 1 DF, QD
  5. OMEPRAZOLE [Concomitant]

REACTIONS (13)
  - DERMATITIS ATOPIC [None]
  - ECZEMA [None]
  - SKIN ULCER [None]
  - INFECTION [None]
  - RASH PUSTULAR [None]
  - INSOMNIA [None]
  - CEREBROVASCULAR ACCIDENT [None]
  - EOSINOPHILIA [None]
  - RASH PRURITIC [None]
  - CONSTIPATION [None]
  - HYPERSENSITIVITY [None]
  - MENTAL IMPAIRMENT [None]
  - PRURITUS [None]
